FAERS Safety Report 4713714-0 (Version None)
Quarter: 2005Q3

REPORT INFORMATION
  Report Type: 
  Country: None (occurrence: None)
  Receive Date: 20050712
  Receipt Date: 20050627
  Transmission Date: 20060218
  Serious: Yes (Other)
  Sender: FDA-Public Use
  Company Number: 2005S1000198

PATIENT
  Age: 50 Year
  Sex: Female
  Weight: 63.5036 kg

DRUGS (3)
  1. SORIATANE [Suspect]
     Indication: PSORIASIS
     Dosage: 25 MG; PO
     Route: 048
     Dates: start: 20020101
  2. CORTICOSTEROIDS [Concomitant]
  3. UVB THERAPY [Concomitant]

REACTIONS (1)
  - CONVULSION [None]
